FAERS Safety Report 5824998-X (Version None)
Quarter: 2008Q3

REPORT INFORMATION
  Report Type: 
  Country: None (occurrence: None)
  Receive Date: 20080728
  Receipt Date: 20080716
  Transmission Date: 20090109
  Serious: Yes (Other)
  Sender: FDA-Public Use
  Company Number: FR-PFIZER INC-2008061037

PATIENT
  Sex: Male

DRUGS (7)
  1. CHANTIX [Suspect]
  2. CLOPIDOGREL [Concomitant]
  3. KARDEGIC [Concomitant]
  4. GLIMEPIRIDE [Concomitant]
  5. SERETIDE [Concomitant]
  6. CREON [Concomitant]
  7. ATORVASTATIN CALCIUM [Concomitant]

REACTIONS (1)
  - HAEMATURIA [None]
